FAERS Safety Report 6247173-6 (Version None)
Quarter: 2009Q2

REPORT INFORMATION
  Report Type: 
  Country: None (occurrence: None)
  Receive Date: 20090626
  Receipt Date: 20090617
  Transmission Date: 20091009
  Serious: Yes (Hospitalization)
  Sender: FDA-Public Use
  Company Number: US-JNJFOC-20090606137

PATIENT
  Sex: Male
  Weight: 99.79 kg

DRUGS (4)
  1. REMICADE [Suspect]
     Route: 042
  2. REMICADE [Suspect]
     Indication: COLITIS ULCERATIVE
     Dosage: 3 INFUSIONS ON UNSPECIFIED DATES
     Route: 042
  3. ASACOL [Concomitant]
     Indication: COLITIS ULCERATIVE
     Dosage: 2 TABLETS 4 TIMES A DAY
  4. COUMADIN [Concomitant]

REACTIONS (3)
  - JOINT LOCK [None]
  - TRISMUS [None]
  - UNRESPONSIVE TO STIMULI [None]
